FAERS Safety Report 13079447 (Version 1)
Quarter: 2017Q1

REPORT INFORMATION
  Report Type: Spontaneous
  Country: IN (occurrence: IN)
  Receive Date: 20170103
  Receipt Date: 20170103
  Transmission Date: 20170428
  Serious: Yes (Life-Threatening, Hospitalization, Other)
  Sender: FDA-Public Use
  Company Number: IN-SUN PHARMACEUTICAL INDUSTRIES LTD-2016R1-130516

PATIENT
  Age: 48 Year
  Sex: Male

DRUGS (5)
  1. LORAZEPAM. [Interacting]
     Active Substance: LORAZEPAM
     Indication: DETOXIFICATION
     Dosage: GRADUALLY TAPERED
     Route: 065
  2. RISPERIDONE. [Suspect]
     Active Substance: RISPERIDONE
     Indication: AGITATION
     Dosage: UNK
     Route: 065
  3. VALPROIC ACID. [Interacting]
     Active Substance: VALPROIC ACID
     Indication: MANIA
     Dosage: UNK
     Route: 065
  4. VALPROIC ACID. [Interacting]
     Active Substance: VALPROIC ACID
     Indication: MANIA
     Dosage: 1500 MG, QD (AT NIGHT)
     Route: 065
  5. LORAZEPAM. [Interacting]
     Active Substance: LORAZEPAM
     Indication: DETOXIFICATION
     Dosage: 2 MG, TID
     Route: 065

REACTIONS (2)
  - Drug interaction [Recovered/Resolved]
  - Hyperammonaemic encephalopathy [Recovered/Resolved]
